FAERS Safety Report 6241079-4 (Version None)
Quarter: 2009Q2

REPORT INFORMATION
  Report Type: 
  Country: None (occurrence: None)
  Receive Date: 20090619
  Receipt Date: 20090619
  Transmission Date: 20091009
  Serious: Yes (Other)
  Sender: FDA-Public Use
  Company Number: None

PATIENT
  Age: 35 Year
  Sex: Male
  Weight: 70.3075 kg

DRUGS (1)
  1. MEDERA CREAM WITH SPF 30 MERZ [Suspect]
     Indication: SCAR
     Dosage: 2 TOP
     Route: 061
     Dates: start: 20090601, end: 20090602

REACTIONS (2)
  - IMPAIRED HEALING [None]
  - RASH [None]
